FAERS Safety Report 19671047 (Version 1)
Quarter: 2021Q3

REPORT INFORMATION
  Report Type: Spontaneous
  Country: VE (occurrence: VE)
  Receive Date: 20210806
  Receipt Date: 20210806
  Transmission Date: 20211014
  Serious: Yes (Other)
  Sender: FDA-Public Use
  Company Number: NVSC2020VE017832

PATIENT
  Sex: Female

DRUGS (2)
  1. GLIVEC [Suspect]
     Active Substance: IMATINIB MESYLATE
     Dosage: 300 MG
     Route: 065
  2. GLIVEC [Suspect]
     Active Substance: IMATINIB MESYLATE
     Indication: CHRONIC MYELOID LEUKAEMIA
     Dosage: 400 MG (4 X 100 MG)
     Route: 065

REACTIONS (12)
  - Eye haemorrhage [Unknown]
  - Tension [Unknown]
  - Ocular discomfort [Not Recovered/Not Resolved]
  - Pruritus [Unknown]
  - Gait disturbance [Unknown]
  - Nasopharyngitis [Unknown]
  - Eye swelling [Unknown]
  - Urticaria [Unknown]
  - Ocular hyperaemia [Unknown]
  - Swelling face [Unknown]
  - Dizziness [Unknown]
  - Oedema [Unknown]
